FAERS Safety Report 13733750 (Version 1)
Quarter: 2017Q3

REPORT INFORMATION
  Report Type: Report from Study
  Country: CN (occurrence: CN)
  Receive Date: 20170707
  Receipt Date: 20170707
  Transmission Date: 20171127
  Serious: Yes (Hospitalization, Other)
  Sender: FDA-Public Use
  Company Number: PHHY2016CN099058

PATIENT
  Age: 28 Year
  Sex: Male
  Weight: 73.8 kg

DRUGS (38)
  1. MYFORTIC [Suspect]
     Active Substance: MYCOPHENOLATE SODIUM
     Indication: IMMUNOSUPPRESSANT DRUG THERAPY
     Dosage: 720 MG, QD
     Route: 048
     Dates: start: 20160315
  2. TACROLIMUS. [Concomitant]
     Active Substance: TACROLIMUS
     Dosage: 5.5 MG, UNK
     Route: 065
     Dates: start: 20160329
  3. METHYLPREDNISOLONE. [Concomitant]
     Active Substance: METHYLPREDNISOLONE
     Dosage: 108 MG, UNK
     Route: 065
     Dates: start: 20160320
  4. METHYLPREDNISOLONE. [Concomitant]
     Active Substance: METHYLPREDNISOLONE
     Dosage: 12 MG, UNK
     Route: 065
     Dates: start: 20160324
  5. METHYLPREDNISOLONE. [Concomitant]
     Active Substance: METHYLPREDNISOLONE
     Dosage: 500 MG, UNK
     Route: 065
     Dates: start: 20160317, end: 20160318
  6. METHYLPREDNISOLONE. [Concomitant]
     Active Substance: METHYLPREDNISOLONE
     Dosage: 20 MG, UNK
     Route: 065
     Dates: start: 20160322
  7. CALCITONIN [Concomitant]
     Active Substance: CALCITONIN
     Indication: BONE LOSS
     Dosage: UNK
     Route: 065
  8. MYFORTIC [Suspect]
     Active Substance: MYCOPHENOLATE SODIUM
     Dosage: 1080 MG, QD
     Route: 048
     Dates: start: 20160319, end: 20160405
  9. MYFORTIC [Suspect]
     Active Substance: MYCOPHENOLATE SODIUM
     Dosage: 900 MG, QD
     Route: 048
     Dates: start: 20160406, end: 20160627
  10. TACROLIMUS. [Concomitant]
     Active Substance: TACROLIMUS
     Dosage: 7 MG, UNK
     Route: 065
     Dates: start: 20160319
  11. TACROLIMUS. [Concomitant]
     Active Substance: TACROLIMUS
     Dosage: 7.5 MG, UNK
     Route: 065
     Dates: start: 20160318
  12. TACROLIMUS. [Concomitant]
     Active Substance: TACROLIMUS
     Dosage: 4.5 MG, UNK
     Route: 065
     Dates: start: 20160405, end: 20160413
  13. METHYLPREDNISOLONE. [Concomitant]
     Active Substance: METHYLPREDNISOLONE
     Dosage: 24 MG, UNK
     Route: 065
     Dates: start: 20160321
  14. TACROLIMUS. [Concomitant]
     Active Substance: TACROLIMUS
     Indication: RENAL TRANSPLANT
     Dosage: 11 MG, UNK
     Route: 065
     Dates: start: 20160314
  15. TACROLIMUS. [Concomitant]
     Active Substance: TACROLIMUS
     Dosage: 5.5 MG, UNK
     Route: 065
     Dates: start: 20160327
  16. METHYLPREDNISOLONE. [Concomitant]
     Active Substance: METHYLPREDNISOLONE
     Dosage: 750 MG, UNK
     Route: 065
     Dates: start: 20160315, end: 20160316
  17. METHYLPREDNISOLONE. [Concomitant]
     Active Substance: METHYLPREDNISOLONE
     Dosage: 32 MG, UNK
     Route: 065
     Dates: start: 20160319
  18. MMF [Concomitant]
     Active Substance: MYCOPHENOLATE MOFETIL
     Dosage: 1 G, UNK
     Route: 065
     Dates: start: 20160318
  19. TACROLIMUS. [Concomitant]
     Active Substance: TACROLIMUS
     Dosage: 6 MG, UNK
     Route: 065
     Dates: start: 20160317
  20. TACROLIMUS. [Concomitant]
     Active Substance: TACROLIMUS
     Dosage: 5.5 MG, UNK
     Route: 065
     Dates: start: 20160325
  21. TACROLIMUS. [Concomitant]
     Active Substance: TACROLIMUS
     Dosage: 6 MG, UNK
     Route: 065
     Dates: start: 20160328
  22. METHYLPREDNISOLONE. [Concomitant]
     Active Substance: METHYLPREDNISOLONE
     Indication: RENAL TRANSPLANT
     Dosage: 64 MG, UNK
     Route: 065
     Dates: start: 20160314
  23. METHYLPREDNISOLONE. [Concomitant]
     Active Substance: METHYLPREDNISOLONE
     Dosage: 8 MG, UNK
     Route: 065
     Dates: start: 20160325
  24. MMF [Concomitant]
     Active Substance: MYCOPHENOLATE MOFETIL
     Indication: RENAL TRANSPLANT
     Dosage: 1 G, UNK
     Route: 065
     Dates: start: 20160315
  25. CALCIUM + VITAMIN D                /01483701/ [Concomitant]
     Active Substance: CALCIUM\VITAMIN D
     Indication: BONE LOSS
     Dosage: UNK
     Route: 065
  26. MYFORTIC [Suspect]
     Active Substance: MYCOPHENOLATE SODIUM
     Indication: RENAL TRANSPLANT
     Dosage: 1080 MG, QD
     Route: 048
     Dates: start: 20160314
  27. MYFORTIC [Suspect]
     Active Substance: MYCOPHENOLATE SODIUM
     Dosage: 540 MG, QD
     Route: 048
     Dates: start: 20160318
  28. MYFORTIC [Suspect]
     Active Substance: MYCOPHENOLATE SODIUM
     Dosage: 810 MG, UNK
     Route: 048
     Dates: start: 20160823, end: 20161024
  29. TACROLIMUS. [Concomitant]
     Active Substance: TACROLIMUS
     Dosage: 5 MG, UNK
     Route: 065
     Dates: start: 20160315
  30. TACROLIMUS. [Concomitant]
     Active Substance: TACROLIMUS
     Dosage: 6 MG, UNK
     Route: 065
     Dates: start: 20160326
  31. MMF [Concomitant]
     Active Substance: MYCOPHENOLATE MOFETIL
     Dosage: 2 G, UNK
     Route: 065
     Dates: start: 20160316, end: 20160317
  32. MYFORTIC [Suspect]
     Active Substance: MYCOPHENOLATE SODIUM
     Dosage: 720 MG, QD
     Route: 048
     Dates: start: 20160628
  33. TACROLIMUS. [Concomitant]
     Active Substance: TACROLIMUS
     Dosage: 6.5 MG, UNK
     Route: 065
     Dates: start: 20160320
  34. TACROLIMUS. [Concomitant]
     Active Substance: TACROLIMUS
     Dosage: 6 MG, UNK
     Route: 065
     Dates: start: 20160321, end: 20160324
  35. TACROLIMUS. [Concomitant]
     Active Substance: TACROLIMUS
     Dosage: 6 MG, UNK
     Route: 065
     Dates: start: 20160330
  36. TACROLIMUS. [Concomitant]
     Active Substance: TACROLIMUS
     Dosage: 5 MG, UNK
     Route: 065
     Dates: start: 20160331, end: 20160404
  37. TACROLIMUS. [Concomitant]
     Active Substance: TACROLIMUS
     Dosage: 5 MG, UNK
     Route: 065
     Dates: start: 20160414
  38. METHYLPREDNISOLONE. [Concomitant]
     Active Substance: METHYLPREDNISOLONE
     Dosage: 16 MG, UNK
     Route: 065
     Dates: start: 20160323

REACTIONS (7)
  - Hyperlipidaemia [Not Recovered/Not Resolved]
  - Frequent bowel movements [Recovered/Resolved]
  - Myocardial ischaemia [Recovered/Resolved]
  - Gastroenteritis [Recovered/Resolved]
  - Diarrhoea [Recovered/Resolved]
  - Haemoglobinaemia [Recovered/Resolved]
  - Haemoglobin increased [Not Recovered/Not Resolved]

NARRATIVE: CASE EVENT DATE: 20160326
